FAERS Safety Report 9820698 (Version 2)
Quarter: 2014Q3

REPORT INFORMATION
  Report Type: Spontaneous
  Country: US (occurrence: None)
  Receive Date: 20131028
  Receipt Date: 20140714
  Transmission Date: 20150326
  Serious: Yes (Other)
  Sender: FDA-Public Use
  Company Number: 2013US001382

PATIENT
  Age: 32 Year
  Sex: Male
  Weight: 85 kg

DRUGS (7)
  1. ICLUSIG [Suspect]
     Active Substance: PONATINIB
     Indication: CHROMOSOME ANALYSIS ABNORMAL
     Route: 048
     Dates: start: 20130301, end: 20130312
  2. DOCUSATE (DOCUSATE) [Concomitant]
     Active Substance: DOCUSATE
  3. ACYCLOVIR (ACYCLOVIR) [Concomitant]
     Active Substance: ACYCLOVIR
  4. SENNA (SENNA) [Concomitant]
  5. PROCHLORPERAZINE (PROCHLORPERAZINE) [Concomitant]
     Active Substance: PROCHLORPERAZINE
  6. BACTRIM (SULFAMETHOXAZOLE, TRIMETHOPRIM) [Concomitant]
  7. ADVIL [Concomitant]
     Active Substance: IBUPROFEN

REACTIONS (5)
  - Alanine aminotransferase increased [None]
  - Aspartate aminotransferase increased [None]
  - Pleural effusion [None]
  - Rash papular [None]
  - Abdominal pain upper [None]

NARRATIVE: CASE EVENT DATE: 20130311
